FAERS Safety Report 9461140 (Version 1)
Quarter: 2013Q3

REPORT INFORMATION
  Report Type: Spontaneous
  Country: US (occurrence: US)
  Receive Date: 20130816
  Receipt Date: 20130816
  Transmission Date: 20140515
  Serious: No
  Sender: FDA-Public Use
  Company Number: US-BIOGENIDEC-2013BI075305

PATIENT
  Age: 54 Year
  Sex: Female

DRUGS (5)
  1. AVONEX [Suspect]
     Indication: MULTIPLE SCLEROSIS
     Route: 030
     Dates: start: 20121015
  2. NEURONTIN [Concomitant]
     Indication: MUSCLE SPASTICITY
     Route: 048
     Dates: start: 2007
  3. PROVIGIL [Concomitant]
     Indication: FATIGUE
     Dates: start: 2012
  4. VALIUM [Concomitant]
     Indication: MUSCLE SPASTICITY
     Dates: start: 2012
  5. ESTRACE [Concomitant]
     Indication: PREOPERATIVE CARE

REACTIONS (7)
  - Self-injurious ideation [Recovered/Resolved]
  - Gastrooesophageal reflux disease [Recovered/Resolved]
  - Fatigue [Not Recovered/Not Resolved]
  - Depression [Not Recovered/Not Resolved]
  - Confusional state [Recovered/Resolved]
  - Urticaria [Not Recovered/Not Resolved]
  - Nausea [Recovered/Resolved]
